FAERS Safety Report 21325036 (Version 1)
Quarter: 2022Q3

REPORT INFORMATION
  Report Type: Spontaneous
  Country: KR (occurrence: KR)
  Receive Date: 20220912
  Receipt Date: 20220912
  Transmission Date: 20221027
  Serious: Yes (Other)
  Sender: FDA-Public Use
  Company Number: KR-SCALL-2022-KR-000068

PATIENT
  Age: 42 Year
  Sex: Male

DRUGS (1)
  1. AVODART [Suspect]
     Active Substance: DUTASTERIDE
     Indication: Alopecia
     Route: 048
     Dates: start: 2020

REACTIONS (4)
  - Proteinuria [Unknown]
  - Haematuria [Unknown]
  - Renal disorder [Unknown]
  - Renal impairment [Unknown]
